FAERS Safety Report 11888577 (Version 1)
Quarter: 2016Q1

REPORT INFORMATION
  Report Type: Spontaneous
  Country: GB (occurrence: GB)
  Receive Date: 20160105
  Receipt Date: 20160105
  Transmission Date: 20160526
  Serious: Yes (Other)
  Sender: FDA-Public Use
  Company Number: GB-MYLANLABS-2015M1044368

PATIENT

DRUGS (1)
  1. WARFARIN [Suspect]
     Active Substance: WARFARIN
     Indication: OVARIAN VEIN THROMBOSIS
     Route: 065

REACTIONS (3)
  - Maternal exposure during pregnancy [Unknown]
  - Neutropenia [Unknown]
  - Thrombocytopenia [Unknown]
